FAERS Safety Report 4299486-5 (Version None)
Quarter: 2004Q1

REPORT INFORMATION
  Report Type: 
  Country: None (occurrence: None)
  Receive Date: 20040219
  Receipt Date: 20040211
  Transmission Date: 20041129
  Serious: Yes (Hospitalization)
  Sender: FDA-Public Use
  Company Number: FR-GLAXOSMITHKLINE-B0322878A

PATIENT
  Age: 81 Year
  Sex: Female

DRUGS (7)
  1. AUGMENTIN [Suspect]
     Indication: BRONCHOPNEUMOPATHY
     Dosage: 3G PER DAY
     Route: 042
     Dates: start: 20040105
  2. OFLOCET [Suspect]
     Indication: BRONCHOPNEUMOPATHY
     Dosage: 400MG PER DAY
     Route: 042
     Dates: start: 20040105, end: 20040107
  3. ARICEPT [Concomitant]
     Indication: PSYCHOTIC DISORDER
     Dosage: 10MG PER DAY
     Route: 048
     Dates: start: 20031110, end: 20040105
  4. MELLERIL [Concomitant]
     Indication: PSYCHOTIC DISORDER
     Dosage: 30MG PER DAY
     Route: 048
     Dates: start: 20031110, end: 20040105
  5. SERESTA [Concomitant]
     Indication: PSYCHOTIC DISORDER
     Dosage: 20MG PER DAY
     Route: 048
     Dates: start: 20031110, end: 20040105
  6. ASPIRIN [Concomitant]
     Indication: ARTERIOPATHIC DISEASE
     Dosage: 75MG PER DAY
     Route: 048
  7. VASTAREL [Concomitant]
     Indication: ARTERIOPATHIC DISEASE
     Dosage: 20MG THREE TIMES PER DAY
     Route: 048
     Dates: end: 20040105

REACTIONS (1)
  - CONVULSION [None]
